FAERS Safety Report 17799229 (Version 1)
Quarter: 2020Q2

REPORT INFORMATION
  Report Type: Spontaneous
  Country: DE (occurrence: DE)
  Receive Date: 20200518
  Receipt Date: 20200518
  Transmission Date: 20200714
  Serious: Yes (Hospitalization)
  Sender: FDA-Public Use
  Company Number: DE-MYLANLABS-2020M1048536

PATIENT
  Age: 86 Year
  Sex: Female

DRUGS (10)
  1. PANTOPRAZOL                        /01263201/ [Concomitant]
     Active Substance: PANTOPRAZOLE
     Dosage: 40 MG, 1-0-0-0, TABLETTEN
  2. SIMVASTATIN. [Concomitant]
     Active Substance: SIMVASTATIN
     Dosage: 20 MG/2 TAGE, 0-0-1-0, TABLETTEN
  3. APIXABAN [Concomitant]
     Active Substance: APIXABAN
     Dosage: 2.5 MG, 1-0-1-0, TABLETTEN
  4. TORASEMIDE [Suspect]
     Active Substance: TORSEMIDE
     Indication: PRODUCT USED FOR UNKNOWN INDICATION
     Dosage: 20 MG, 2-0-0-0, TABLETTEN
  5. ARLEVERT [Suspect]
     Active Substance: CINNARIZINE\DIMENHYDRINATE
     Dosage: 20|40 MG, ABGESETZT, TABLETTEN
  6. CALCIVIT D [Concomitant]
     Dosage: 600|400 MG/IE, 1-0-1-0, BRAUSETABLETTEN
  7. PROPIVERINE [Concomitant]
     Active Substance: PROPIVERINE
     Dosage: 30 MG, 0-0-1-0, KAPSELN
  8. RAMIPRIL. [Concomitant]
     Active Substance: RAMIPRIL
     Dosage: 2.5 MG, 0.5-0-0-0, TABLETTEN
  9. BISOPROLOL [Concomitant]
     Active Substance: BISOPROLOL
     Dosage: 5 MG, 1-0.5-0.5-0, TABLETTEN
  10. XIPAMIDE [Suspect]
     Active Substance: XIPAMIDE
     Indication: PRODUCT USED FOR UNKNOWN INDICATION
     Dosage: 20 MG, 1-0-0-0, TABLETTEN

REACTIONS (7)
  - Arrhythmia [Unknown]
  - General physical health deterioration [Unknown]
  - Confusional state [Unknown]
  - Dehydration [Unknown]
  - Fall [Unknown]
  - Dizziness [Unknown]
  - Tachycardia [Unknown]
